FAERS Safety Report 16076259 (Version 2)
Quarter: 2019Q2

REPORT INFORMATION
  Report Type: Spontaneous
  Country: CA (occurrence: CA)
  Receive Date: 20190315
  Receipt Date: 20190522
  Transmission Date: 20190711
  Serious: Yes (Other)
  Sender: FDA-Public Use
  Company Number: CA-AUROBINDO-AUR-APL-2019-013251

PATIENT
  Age: 65 Year
  Sex: Female

DRUGS (13)
  1. METFORMIN [Suspect]
     Active Substance: METFORMIN HYDROCHLORIDE
     Indication: TYPE 2 DIABETES MELLITUS
     Dosage: 1 DOSAGE FORM, TWO TIMES A DAY
     Route: 048
  2. ROSUVASTATIN TABLET [Suspect]
     Active Substance: ROSUVASTATIN
     Indication: DYSLIPIDAEMIA
     Dosage: 1 DOSAGE FORM, DAILY
     Route: 048
  3. PERINDOPRIL [Concomitant]
     Active Substance: PERINDOPRIL
     Indication: HYPERTENSION
  4. GABAPENTIN. [Concomitant]
     Active Substance: GABAPENTIN
     Indication: PAIN MANAGEMENT
     Dosage: 1 DOSAGE FORM, 3 TIMES A DAY
     Route: 048
  5. PANTOPRAZOLE [Suspect]
     Active Substance: PANTOPRAZOLE
     Indication: GASTROOESOPHAGEAL REFLUX DISEASE
     Dosage: 1 DOSAGE FORM, ONCE A DAY
     Route: 065
  6. OMALIZUMAB. [Suspect]
     Active Substance: OMALIZUMAB
     Indication: ASTHMA
     Dosage: 300 MILLIGRAM, 1 EVRY 2 WEEKS
     Route: 058
  7. ZENHALE [Concomitant]
     Active Substance: FORMOTEROL FUMARATE\MOMETASONE FUROATE
     Indication: ASTHMA
     Dosage: 2 DOSAGE FORM, TWO TIMES A DAY
  8. PREDNISONE. [Concomitant]
     Active Substance: PREDNISONE
     Indication: DIABETES MELLITUS
     Dosage: 1 DOSAGE FORM, DAILY
     Route: 065
  9. VENTOLIN [Concomitant]
     Active Substance: ALBUTEROL SULFATE
     Indication: ASTHMA
     Dosage: 2 DOSAGE FORM
  10. FUROSEMIDE. [Suspect]
     Active Substance: FUROSEMIDE
     Indication: HYPERTENSION
     Dosage: 1 DOSAGE FORM, DAILY
     Route: 048
  11. SPIRIVA [Concomitant]
     Active Substance: TIOTROPIUM BROMIDE MONOHYDRATE
     Indication: ASTHMA
     Dosage: 2 DOSAGE FORM, DAILY
  12. INSULIN [Concomitant]
     Active Substance: INSULIN NOS
     Indication: DIABETES MELLITUS
     Dosage: UNK
     Route: 065
  13. PERINDOPRIL [Concomitant]
     Active Substance: PERINDOPRIL
     Indication: DIABETES MELLITUS
     Dosage: 1 DOSAGE FORM, DAILY
     Route: 048

REACTIONS (16)
  - Dizziness [Unknown]
  - Mobility decreased [Unknown]
  - Swollen tongue [Unknown]
  - Choking [Unknown]
  - Diabetes mellitus inadequate control [Unknown]
  - Limb discomfort [Unknown]
  - Dysphonia [Unknown]
  - Hypophagia [Unknown]
  - Peripheral swelling [Unknown]
  - Dysphagia [Unknown]
  - Dyspnoea [Unknown]
  - Throat tightness [Unknown]
  - Eye disorder [Unknown]
  - Lower respiratory tract infection [Unknown]
  - Pharyngeal oedema [Unknown]
  - Incorrect dose administered [Unknown]
